FAERS Safety Report 6261477-2 (Version None)
Quarter: 2009Q3

REPORT INFORMATION
  Report Type: 
  Country: None (occurrence: None)
  Receive Date: 20090707
  Receipt Date: 20090707
  Transmission Date: 20100115
  Serious: Yes (Disabling)
  Sender: FDA-Public Use
  Company Number: None

PATIENT
  Age: 60 Year
  Sex: Female
  Weight: 63.5036 kg

DRUGS (1)
  1. LEVAQUIN [Suspect]
     Indication: VAGINAL INFECTION
     Dosage: 1 PILL TWIE DAILY PO
     Route: 048
     Dates: start: 20090428, end: 20090504

REACTIONS (1)
  - TENDON RUPTURE [None]
